FAERS Safety Report 25144609 (Version 3)
Quarter: 2025Q2

REPORT INFORMATION
  Report Type: Spontaneous
  Country: FR (occurrence: FR)
  Receive Date: 20250401
  Receipt Date: 20250526
  Transmission Date: 20250717
  Serious: Yes (Other)
  Sender: pharmaAND
  Company Number: FR-INTSELCHIM-202502029

PATIENT
  Age: 95 Year
  Sex: Female
  Weight: 60 kg

DRUGS (11)
  1. RUBRACA [Suspect]
     Active Substance: RUCAPARIB CAMSYLATE
     Indication: Ovarian cancer
     Route: 048
     Dates: start: 20250101
  2. RUBRACA [Suspect]
     Active Substance: RUCAPARIB CAMSYLATE
     Indication: Ovarian cancer
     Dosage: 400 MG TWICE DAILY
     Route: 048
  3. bisoprolol 1.25 mg [Concomitant]
  4. alimemazine 4 % [Concomitant]
  5. CALCIUM CARBONATE\CHOLECALCIFEROL [Concomitant]
     Active Substance: CALCIUM CARBONATE\CHOLECALCIFEROL
  6. lanzoprazole 30 mg [Concomitant]
  7. ACETAMINOPHEN\CODEINE PHOSPHATE [Concomitant]
     Active Substance: ACETAMINOPHEN\CODEINE PHOSPHATE
  8. Enoxaparine 4000 [Concomitant]
  9. ALPRAZOLAM [Concomitant]
     Active Substance: ALPRAZOLAM
  10. LACTULOSE [Concomitant]
     Active Substance: LACTULOSE
  11. ONDANSETRON [Concomitant]
     Active Substance: ONDANSETRON

REACTIONS (1)
  - Interstitial lung disease [Not Recovered/Not Resolved]

NARRATIVE: CASE EVENT DATE: 20250317
